FAERS Safety Report 9441074 (Version 1)
Quarter: 2013Q3

REPORT INFORMATION
  Report Type: Spontaneous
  Country: US (occurrence: US)
  Receive Date: 20130805
  Receipt Date: 20130805
  Transmission Date: 20140515
  Serious: No
  Sender: FDA-Public Use
  Company Number: US-JNJFOC-20130706933

PATIENT
  Sex: Female
  Weight: 88.91 kg

DRUGS (27)
  1. INVEGA SUSTENNA [Suspect]
     Indication: SCHIZOPHRENIA
     Route: 030
     Dates: start: 20130708
  2. FRAGMIN [Concomitant]
     Indication: ANTICOAGULANT THERAPY
     Route: 065
  3. FRAGMIN [Concomitant]
     Indication: ANTICOAGULANT THERAPY
     Dosage: 0.2 ML
     Route: 065
  4. FRAGMIN [Concomitant]
     Indication: ANTICOAGULANT THERAPY
     Dosage: 0.2 ML
     Route: 065
  5. FRAGMIN [Concomitant]
     Indication: ANTICOAGULANT THERAPY
     Dosage: 0.3 ML
     Route: 065
  6. FRAGMIN [Concomitant]
     Indication: ANTICOAGULANT THERAPY
     Dosage: 1 ML
     Route: 065
  7. FRAGMIN [Concomitant]
     Indication: ANTICOAGULANT THERAPY
     Route: 065
  8. LOVENOX [Concomitant]
     Indication: ANTICOAGULANT THERAPY
     Dosage: 0.4 ML
     Route: 065
  9. LOVENOX [Concomitant]
     Indication: ANTICOAGULANT THERAPY
     Dosage: 0.6 ML
     Route: 065
  10. LOVENOX [Concomitant]
     Indication: ANTICOAGULANT THERAPY
     Dosage: 0.8 ML
     Route: 065
  11. LOVENOX [Concomitant]
     Indication: ANTICOAGULANT THERAPY
     Dosage: 1 ML
     Route: 065
  12. LOVENOX [Concomitant]
     Indication: ANTICOAGULANT THERAPY
     Dosage: 0.8 ML
     Route: 065
  13. LOVENOX [Concomitant]
     Indication: ANTICOAGULANT THERAPY
     Dosage: 1 ML
     Route: 065
  14. LOVENOX [Concomitant]
     Indication: ANTICOAGULANT THERAPY
     Dosage: 1 ML
     Route: 065
  15. LOVENOX [Concomitant]
     Indication: ANTICOAGULANT THERAPY
     Dosage: 0.3 ML
     Route: 065
  16. ARIXTRA [Concomitant]
     Indication: ANTICOAGULANT THERAPY
     Dosage: 0.8 ML
     Route: 065
  17. ARIXTRA [Concomitant]
     Indication: ANTICOAGULANT THERAPY
     Dosage: 0.6 ML
     Route: 065
  18. ARIXTRA [Concomitant]
     Indication: ANTICOAGULANT THERAPY
     Dosage: 0.4 ML
     Route: 065
  19. ARIXTRA [Concomitant]
     Indication: ANTICOAGULANT THERAPY
     Dosage: 0.5 ML
     Route: 065
  20. TESTOSTERONE [Concomitant]
     Indication: HORMONE THERAPY
     Route: 065
  21. TESTOSTERONE [Concomitant]
     Indication: HORMONE THERAPY
     Route: 065
  22. PULMOZYME [Concomitant]
     Route: 065
  23. TOBRAMYCIN [Concomitant]
     Route: 065
  24. COPAXONE [Concomitant]
     Indication: MULTIPLE SCLEROSIS
     Dosage: 20 MG/2 ML
     Route: 065
  25. REBIF [Concomitant]
     Indication: MULTIPLE SCLEROSIS
     Route: 065
  26. REBIF [Concomitant]
     Indication: MULTIPLE SCLEROSIS
     Route: 065
  27. REBIF [Concomitant]
     Indication: MULTIPLE SCLEROSIS
     Dosage: TITRATION PACK
     Route: 065

REACTIONS (1)
  - Hallucination [Unknown]
